FAERS Safety Report 23602943 (Version 1)
Quarter: 2024Q1

REPORT INFORMATION
  Report Type: Report from Study
  Country: CN (occurrence: CN)
  Receive Date: 20240306
  Receipt Date: 20240306
  Transmission Date: 20240409
  Serious: Yes (Life-Threatening, Other)
  Sender: FDA-Public Use
  Company Number: CN-TAKEDA-2024TUS020552

PATIENT
  Age: 57 Year
  Sex: Female

DRUGS (1)
  1. IXAZOMIB [Suspect]
     Active Substance: IXAZOMIB
     Indication: Plasma cell myeloma
     Dosage: UNK
     Route: 048

REACTIONS (5)
  - Platelet count decreased [Unknown]
  - Pneumonia [Unknown]
  - Decreased immune responsiveness [Unknown]
  - Influenza [Unknown]
  - Nodule [Unknown]

NARRATIVE: CASE EVENT DATE: 20230201
